FAERS Safety Report 6909530-1 (Version None)
Quarter: 2010Q3

REPORT INFORMATION
  Report Type: 
  Country: None (occurrence: None)
  Receive Date: 20100805
  Receipt Date: 20100723
  Transmission Date: 20110219
  Serious: Yes (Hospitalization)
  Sender: FDA-Public Use
  Company Number: JP-AMGEN-QUU421717

PATIENT
  Age: 74 Year
  Sex: Female

DRUGS (3)
  1. ENBREL [Suspect]
     Indication: RHEUMATOID ARTHRITIS
     Dosage: UNKNOWN
     Route: 058
     Dates: start: 20090101, end: 20100601
  2. ENBREL [Suspect]
     Dosage: DOSE NOT SPECIFIED
     Route: 058
     Dates: start: 20100101
  3. PROGRAF [Concomitant]
     Dosage: UNKNOWN
     Route: 048

REACTIONS (2)
  - HERPES ZOSTER [None]
  - LARGE INTESTINE CARCINOMA [None]
